FAERS Safety Report 24825792 (Version 1)
Quarter: 2025Q1

REPORT INFORMATION
  Report Type: Spontaneous
  Country: CA (occurrence: CA)
  Receive Date: 20250109
  Receipt Date: 20250109
  Transmission Date: 20250409
  Serious: Yes (Other)
  Sender: PFIZER
  Company Number: CA-PFIZER INC-PV202500000364

PATIENT
  Age: 37 Year
  Sex: Female

DRUGS (28)
  1. SULFASALAZINE [Interacting]
     Active Substance: SULFASALAZINE
     Indication: Arthritis
     Dosage: 1000 MG, 4X/DAY
     Dates: start: 19981112, end: 19990210
  2. SULFASALAZINE [Interacting]
     Active Substance: SULFASALAZINE
     Indication: Colitis ulcerative
  3. WARFARIN [Interacting]
     Active Substance: WARFARIN
     Indication: Deep vein thrombosis
     Route: 048
     Dates: start: 19981006
  4. WARFARIN [Interacting]
     Active Substance: WARFARIN
     Indication: Thrombosis prophylaxis
     Route: 048
     Dates: start: 19981027
  5. WARFARIN [Interacting]
     Active Substance: WARFARIN
     Route: 048
     Dates: start: 19981112
  6. WARFARIN [Interacting]
     Active Substance: WARFARIN
     Route: 048
     Dates: start: 19981116
  7. WARFARIN [Interacting]
     Active Substance: WARFARIN
     Dosage: 5 MG, DAILY
     Route: 048
     Dates: start: 19981119
  8. WARFARIN [Interacting]
     Active Substance: WARFARIN
     Dosage: 5 MG, DAILY
     Route: 048
     Dates: start: 19981124
  9. WARFARIN [Interacting]
     Active Substance: WARFARIN
     Route: 048
     Dates: start: 19981201
  10. WARFARIN [Interacting]
     Active Substance: WARFARIN
     Dosage: 7.5 MG, DAILY
     Route: 048
     Dates: start: 19981210
  11. WARFARIN [Interacting]
     Active Substance: WARFARIN
     Dosage: 10 MG, DAILY
     Route: 048
     Dates: start: 19981214
  12. WARFARIN [Interacting]
     Active Substance: WARFARIN
     Dosage: 12.5 MG, DAILY
     Route: 048
     Dates: start: 19981217
  13. WARFARIN [Interacting]
     Active Substance: WARFARIN
     Route: 048
     Dates: start: 19981221
  14. WARFARIN [Interacting]
     Active Substance: WARFARIN
     Dosage: 10 MG, DAILY
     Route: 048
     Dates: start: 19981224
  15. WARFARIN [Interacting]
     Active Substance: WARFARIN
     Route: 048
     Dates: start: 19981229
  16. WARFARIN [Interacting]
     Active Substance: WARFARIN
     Route: 048
     Dates: start: 19990105
  17. WARFARIN [Interacting]
     Active Substance: WARFARIN
     Route: 048
     Dates: start: 19990116
  18. WARFARIN [Interacting]
     Active Substance: WARFARIN
     Dosage: 10 MG, DAILY
     Route: 048
     Dates: start: 19990202
  19. WARFARIN [Interacting]
     Active Substance: WARFARIN
     Dosage: 7.5 MG, DAILY (WITHHOLD 1 DOSE, THEN 7.5 MG/D)
     Route: 048
     Dates: start: 19990210
  20. WARFARIN [Interacting]
     Active Substance: WARFARIN
     Dosage: 7.5 MG, DAILY (WITHHOLD 1 DOSE)
     Route: 048
     Dates: start: 19990216
  21. WARFARIN [Interacting]
     Active Substance: WARFARIN
     Dosage: 5 MG, DAILY (WITHHOLD 2 DOSES, THEN 5 MG/D)
     Route: 048
     Dates: start: 19990223
  22. BECLOMETHASONE [Concomitant]
     Active Substance: BECLOMETHASONE
     Indication: Asthma
     Dosage: 2 PUFFS, 2X/DAY
  23. ALBUTEROL [Concomitant]
     Active Substance: ALBUTEROL
     Indication: Asthma
     Route: 055
  24. ETHINYL ESTRADIOL\NORGESTREL [Concomitant]
     Active Substance: ETHINYL ESTRADIOL\NORGESTREL
     Indication: Contraception
  25. ASPIRIN [Concomitant]
     Active Substance: ASPIRIN
     Indication: Arthritis
     Dosage: 325 MG, 1X/DAY
  26. AZATHIOPRINE [Concomitant]
     Active Substance: AZATHIOPRINE
     Indication: Colitis ulcerative
     Dosage: 125 MG, 1X/DAY
     Dates: start: 199803
  27. NAPROXEN [Concomitant]
     Active Substance: NAPROXEN
     Dosage: 500 MG, 2X/DAY
     Dates: start: 19981201, end: 19981209
  28. OMEPRAZOLE [Concomitant]
     Active Substance: OMEPRAZOLE
     Dosage: 20 MG, 1X/DAY
     Dates: start: 19981201, end: 19981209

REACTIONS (4)
  - Drug interaction [Recovered/Resolved]
  - Drug resistance [Recovered/Resolved]
  - Anticoagulation drug level below therapeutic [Recovered/Resolved]
  - Deep vein thrombosis [Recovered/Resolved]

NARRATIVE: CASE EVENT DATE: 19981112
